FAERS Safety Report 7713790 (Version 2)
Quarter: 2013Q3

REPORT INFORMATION
  Report Type: Spontaneous
  Country: US (occurrence: US)
  Receive Date: 20101216
  Receipt Date: 20130916
  Transmission Date: 20140515
  Serious: Yes (Death)
  Sender: FDA-Public Use
  Company Number: US-RANBAXY-2010US-40160

PATIENT
  Age: 5 Month
  Sex: Male

DRUGS (3)
  1. GANCICLOVIR [Suspect]
     Indication: CYTOMEGALOVIRUS VIRAEMIA
     Dosage: UNK, UNK
     Route: 065
  2. CYTOMEGALOVIRUS IMMUNE GLOBULIN HUMAN [Suspect]
     Indication: CYTOMEGALOVIRUS VIRAEMIA
     Dosage: UNK, UNK
     Route: 065
  3. IMMUNOGLOBULIN [Suspect]
     Indication: CYTOMEGALOVIRUS VIRAEMIA
     Dosage: UNK, UNK
     Route: 042

REACTIONS (3)
  - Drug ineffective [Fatal]
  - Pneumonitis [Fatal]
  - Drug resistance [Fatal]
